FAERS Safety Report 5934222-5 (Version None)
Quarter: 2008Q4

REPORT INFORMATION
  Report Type: 
  Country: None (occurrence: None)
  Receive Date: 20081028
  Receipt Date: 20081028
  Transmission Date: 20090506
  Serious: Yes (Other)
  Sender: FDA-Public Use
  Company Number: None

PATIENT
  Age: 77 Year
  Sex: Male
  Weight: 114 kg

DRUGS (1)
  1. NATRECOR [Suspect]
     Indication: CARDIAC FAILURE CONGESTIVE
     Dosage: 1.5 MG 6.5 ML/HR IV
     Route: 042
     Dates: start: 20080220, end: 20080222

REACTIONS (2)
  - BLOOD CREATININE INCREASED [None]
  - HYPOTENSION [None]
